FAERS Safety Report 9242993 (Version 1)
Quarter: 2013Q2

REPORT INFORMATION
  Report Type: Spontaneous
  Country: US (occurrence: US)
  Receive Date: 20130419
  Receipt Date: 20130419
  Transmission Date: 20140414
  Serious: Yes (Death, Other)
  Sender: FDA-Public Use
  Company Number: PHHY2013US038275

PATIENT
  Age: 39 Year
  Sex: Female

DRUGS (4)
  1. CARBOPLATIN [Suspect]
     Indication: OVARIAN CANCER
     Dosage: UNK UKN, UNK
  2. CARBOPLATIN [Suspect]
     Dosage: UNK UKN, UNK
     Dates: start: 201005
  3. PACLITAXEL [Suspect]
     Indication: DISEASE RECURRENCE
  4. PEGYLATED LIPOSOMAL DOXORUBICIN HYDROCHLORIDE [Suspect]
     Dosage: 1445 MG/M2, UNK
     Dates: start: 200609, end: 201001

REACTIONS (12)
  - Intestinal perforation [Fatal]
  - Rectal obstruction [Fatal]
  - Ovarian cancer [Fatal]
  - Pelvic mass [Fatal]
  - Malignant neoplasm progression [Fatal]
  - Renal failure chronic [Recovering/Resolving]
  - Thrombotic microangiopathy [Recovering/Resolving]
  - Fluid retention [Recovering/Resolving]
  - Hypertension [Recovering/Resolving]
  - Ovarian cancer recurrent [Unknown]
  - Pleural effusion [Unknown]
  - Anaemia [Unknown]
